FAERS Safety Report 8460160-2 (Version None)
Quarter: 2012Q2

REPORT INFORMATION
  Report Type: 
  Country: None (occurrence: None)
  Receive Date: 20120323
  Receipt Date: 20111110
  Transmission Date: 20120825
  Serious: Yes (Other)
  Sender: FDA-Public Use
  Company Number: 163-21880-11101680

PATIENT
  Age: 86 Year
  Sex: Female

DRUGS (6)
  1. LENALIDOMIDE [Suspect]
     Indication: MYELODYSPLASTIC SYNDROME
     Dosage: 5 MG, QD, PO 5 MG, EVERY OTHER DAY, PO 5 MG, EVERY OTHER DAY, PO
     Route: 048
     Dates: start: 20110322
  2. LENALIDOMIDE [Suspect]
     Indication: MYELODYSPLASTIC SYNDROME
     Dosage: 5 MG, QD, PO 5 MG, EVERY OTHER DAY, PO 5 MG, EVERY OTHER DAY, PO
     Route: 048
     Dates: start: 20110928, end: 20111016
  3. LENALIDOMIDE [Suspect]
     Indication: MYELODYSPLASTIC SYNDROME
     Dosage: 5 MG, QD, PO 5 MG, EVERY OTHER DAY, PO 5 MG, EVERY OTHER DAY, PO
     Route: 048
     Dates: start: 20111024
  4. PREDNISONE [Concomitant]
  5. BLOOD (BLOOD AND RELATED PRODUCTS) (UNKNOWN) [Concomitant]
  6. ASPIRIN LOW DOSE (ACETYLSALICYLIC ACID) (UNKNOWN) [Concomitant]

REACTIONS (2)
  - PLATELET COUNT DECREASED [None]
  - CONTUSION [None]
